FAERS Safety Report 4675488-1 (Version None)
Quarter: 2005Q2

REPORT INFORMATION
  Report Type: 
  Country: None (occurrence: None)
  Receive Date: 20050527
  Receipt Date: 20050322
  Transmission Date: 20051028
  Serious: No
  Sender: FDA-Public Use
  Company Number: US-BRISTOL-MYERS SQUIBB COMPANY-12907895

PATIENT
  Age: 48 Year
  Sex: Female

DRUGS (3)
  1. ABILIFY [Suspect]
     Dosage: INITIATED AT 5 MG/DAY, INC TO 10 MG/DAY TWO MONTHS LATER, THEN DISCONTINUED
  2. EFFEXOR [Concomitant]
  3. TEMAZEPAM [Concomitant]

REACTIONS (1)
  - TARDIVE DYSKINESIA [None]
